FAERS Safety Report 7947053-1 (Version None)
Quarter: 2011Q4

REPORT INFORMATION
  Report Type: 
  Country: None (occurrence: None)
  Receive Date: 20111129
  Receipt Date: 20110829
  Transmission Date: 20120403
  Serious: No
  Sender: FDA-Public Use
  Company Number: US-ASTRAZENECA-2011SE51967

PATIENT
  Age: 71 Year
  Sex: Female

DRUGS (1)
  1. VIMOVO [Suspect]
     Route: 048

REACTIONS (5)
  - ABASIA [None]
  - PAIN [None]
  - DRUG DOSE OMISSION [None]
  - CRYING [None]
  - MALAISE [None]
